FAERS Safety Report 7271298-X (Version None)
Quarter: 2011Q1

REPORT INFORMATION
  Report Type: 
  Country: None (occurrence: None)
  Receive Date: 20110203
  Receipt Date: 20110124
  Transmission Date: 20110831
  Serious: Yes (Hospitalization)
  Sender: FDA-Public Use
  Company Number: US-BIOGENIDEC-2011BI002646

PATIENT
  Age: 56 Year
  Sex: Female

DRUGS (2)
  1. MEDICATION (NOS) [Concomitant]
  2. AVONEX [Suspect]
     Indication: MULTIPLE SCLEROSIS
     Route: 030
     Dates: start: 19980501

REACTIONS (6)
  - HEAD INJURY [None]
  - CONCUSSION [None]
  - CONFUSIONAL STATE [None]
  - OCULAR HYPERAEMIA [None]
  - FALL [None]
  - SWELLING [None]
